FAERS Safety Report 4838309-X (Version None)
Quarter: 2005Q4

REPORT INFORMATION
  Report Type: 
  Country: None (occurrence: None)
  Receive Date: 20051123
  Receipt Date: 20051105
  Transmission Date: 20060501
  Serious: Yes (Hospitalization)
  Sender: FDA-Public Use
  Company Number: 060001L05JPN

PATIENT
  Age: 32 Year
  Sex: Female

DRUGS (1)
  1. CLOMIPHENE CITRATE [Suspect]
     Indication: OVULATION INDUCTION

REACTIONS (6)
  - CAESAREAN SECTION [None]
  - CARDIOMYOPATHY [None]
  - DRUG EXPOSURE BEFORE PREGNANCY [None]
  - POST PROCEDURAL COMPLICATION [None]
  - PULMONARY OEDEMA [None]
  - TWIN PREGNANCY [None]
